FAERS Safety Report 23139622 (Version 1)
Quarter: 2023Q4

REPORT INFORMATION
  Report Type: Report from Study
  Country: US (occurrence: US)
  Receive Date: 20231102
  Receipt Date: 20231102
  Transmission Date: 20240110
  Serious: Yes (Hospitalization)
  Sender: FDA-Public Use
  Company Number: US-AMX-003330

PATIENT
  Age: 72 Year
  Sex: Male

DRUGS (1)
  1. RELYVRIO [Suspect]
     Active Substance: SODIUM PHENYLBUTYRATE\TAURURSODIOL
     Indication: Amyotrophic lateral sclerosis
     Dosage: 1 SACHET ONCE DAILY FOR FIRST 3 WEEKS, THEN ONE SACHET TWICE DAILY
     Route: 048

REACTIONS (4)
  - Diarrhoea [Unknown]
  - Mental disorder [Unknown]
  - Therapy interrupted [Unknown]
  - Muscular weakness [Unknown]
